FAERS Safety Report 10567928 (Version 2)
Quarter: 2015Q1

REPORT INFORMATION
  Report Type: Spontaneous
  Country: FR (occurrence: None)
  Receive Date: 20141104
  Receipt Date: 20150121
  Transmission Date: 20150720
  Serious: Yes (Death)
  Sender: FDA-Public Use
  Company Number: FR2014GSK008560

PATIENT
  Age: 75 Year
  Sex: Male

DRUGS (6)
  1. KARDEGIC [Suspect]
     Active Substance: ASPIRIN LYSINE
     Indication: PRODUCT USED FOR UNKNOWN INDICATION
     Route: 048
     Dates: start: 2003, end: 20140925
  2. DEROXAT [Suspect]
     Active Substance: PAROXETINE HYDROCHLORIDE
     Indication: PRODUCT USED FOR UNKNOWN INDICATION
     Route: 048
     Dates: end: 20140925
  3. CERIS(TROSPIUM CHLORIDE) [Concomitant]
  4. ISOPTIN [Concomitant]
     Active Substance: VERAPAMIL HYDROCHLORIDE
  5. MEDIATENSYL(URAPIDIL) [Concomitant]
  6. TRAMADOL [Concomitant]
     Active Substance: TRAMADOL

REACTIONS (4)
  - Mydriasis [None]
  - Brain death [None]
  - Cerebral haemorrhage [None]
  - Coma [None]

NARRATIVE: CASE EVENT DATE: 20140925
